FAERS Safety Report 8955938 (Version 1)
Quarter: 2012Q4

REPORT INFORMATION
  Report Type: 
  Country: US (occurrence: US)
  Receive Date: 20121210
  Receipt Date: 20121210
  Transmission Date: 20130627
  Serious: Yes (Hospitalization)
  Sender: FDA-Public Use
  Company Number: US-BAYER-2012-128598

PATIENT
  Age: 26 Year
  Sex: Female

DRUGS (9)
  1. YAZ [Suspect]
  2. ADDERALL [Concomitant]
  3. SINGULAIR [Concomitant]
  4. DARVOCET-N [Concomitant]
  5. ADVAIR DISKUS [Concomitant]
  6. FLEXERIL [Concomitant]
  7. GARDASIL [Concomitant]
  8. CIPROFLOXACIN [Concomitant]
     Dosage: 250 mg, UNK
  9. CLARITHROMYCIN [Concomitant]
     Dosage: 500 mg, UNK

REACTIONS (2)
  - Deep vein thrombosis [None]
  - Pulmonary embolism [None]
